FAERS Safety Report 11852267 (Version 1)
Quarter: 2015Q4

REPORT INFORMATION
  Report Type: Spontaneous
  Country: US (occurrence: US)
  Receive Date: 20151218
  Receipt Date: 20151218
  Transmission Date: 20160305
  Serious: Yes (Other)
  Sender: FDA-Public Use
  Company Number: US-LPDUSPRD-20151012

PATIENT

DRUGS (1)
  1. EPINEPHRINE INJECTION, USP (1071-25) [Suspect]
     Active Substance: EPINEPHRINE
     Dosage: 7 ML RAPID PUSH
     Route: 040

REACTIONS (3)
  - Acute myocardial infarction [Unknown]
  - Overdose [Unknown]
  - Incorrect drug administration rate [Unknown]
